FAERS Safety Report 6021414-2 (Version None)
Quarter: 2008Q4

REPORT INFORMATION
  Report Type: 
  Country: None (occurrence: None)
  Receive Date: 20081229
  Receipt Date: 20081224
  Transmission Date: 20090506
  Serious: Yes (Other)
  Sender: FDA-Public Use
  Company Number: B0551792A

PATIENT
  Sex: Male
  Weight: 66 kg

DRUGS (2)
  1. VALTREX [Suspect]
     Indication: FACIAL PALSY
     Route: 048
     Dates: start: 20081210, end: 20081211
  2. VALTREX [Suspect]
     Dosage: 500MG PER DAY
     Route: 048
     Dates: start: 20081212

REACTIONS (2)
  - DIZZINESS [None]
  - MANIA [None]
